FAERS Safety Report 5737552-5 (Version None)
Quarter: 2008Q2

REPORT INFORMATION
  Report Type: 
  Country: None (occurrence: None)
  Receive Date: 20080514
  Receipt Date: 20080513
  Transmission Date: 20081010
  Serious: Yes (Other)
  Sender: FDA-Public Use
  Company Number: A0727936A

PATIENT
  Age: 30 Year
  Sex: Female
  Weight: 67 kg

DRUGS (4)
  1. NIQUITIN [Suspect]
     Indication: SMOKING CESSATION THERAPY
     Dosage: 1PAT PER DAY
     Route: 062
     Dates: start: 20080425, end: 20080425
  2. RIVOTRIL [Concomitant]
     Dosage: 2MG PER DAY
  3. LUVOX [Concomitant]
     Dosage: 100MG PER DAY
  4. ALPRAZOLAM [Concomitant]
     Dosage: 1MG PER DAY

REACTIONS (4)
  - DEAFNESS [None]
  - HYPOTENSION [None]
  - INTENTIONAL DRUG MISUSE [None]
  - PALLOR [None]
